FAERS Safety Report 17652738 (Version 3)
Quarter: 2021Q3

REPORT INFORMATION
  Report Type: Spontaneous
  Country: GB (occurrence: GB)
  Receive Date: 20200409
  Receipt Date: 20210817
  Transmission Date: 20211014
  Serious: Yes (Death, Hospitalization, Other)
  Sender: FDA-Public Use
  Company Number: GB-NOVOPROD-720905

PATIENT
  Age: 82 Year
  Sex: Male

DRUGS (1)
  1. OZEMPIC [Suspect]
     Active Substance: SEMAGLUTIDE
     Indication: TYPE 2 DIABETES MELLITUS
     Dosage: UNK
     Route: 065
     Dates: start: 20200228

REACTIONS (9)
  - Renal failure [Unknown]
  - Sepsis [Unknown]
  - Loss of consciousness [Unknown]
  - Pneumonia [Unknown]
  - Decreased appetite [Unknown]
  - Myocardial infarction [Fatal]
  - Nausea [Unknown]
  - Flatulence [Unknown]
  - Dehydration [Unknown]
